FAERS Safety Report 7944788-1 (Version None)
Quarter: 2011Q4

REPORT INFORMATION
  Report Type: 
  Country: None (occurrence: None)
  Receive Date: 20111129
  Receipt Date: 20111117
  Transmission Date: 20120403
  Serious: Yes (Hospitalization, Other)
  Sender: FDA-Public Use
  Company Number: AU-BRISTOL-MYERS SQUIBB COMPANY-16097719

PATIENT
  Age: 58 Year
  Sex: Female
  Weight: 90 kg

DRUGS (5)
  1. DOXORUBICIN HYDROCHLORIDE [Suspect]
     Indication: METASTATIC NEOPLASM
  2. ENOXAPARIN SODIUM [Suspect]
     Indication: DEEP VEIN THROMBOSIS
     Route: 058
  3. TAXOL [Suspect]
     Indication: METASTATIC NEOPLASM
  4. SUNITINIB MALATE [Suspect]
     Indication: OVARIAN CANCER
     Dosage: CYCLE 1 37.5MG COMMENCED 13SEP2011; INTERRUPTED ON 25OCT11 AND RESTARTED ON 04NOV11 (25 MG/D).
     Route: 048
     Dates: start: 20110913
  5. CARBOPLATIN [Suspect]
     Indication: METASTATIC NEOPLASM

REACTIONS (6)
  - VOMITING [None]
  - DIARRHOEA [None]
  - NEOPLASM MALIGNANT [None]
  - MOUTH ULCERATION [None]
  - NAUSEA [None]
  - ABDOMINAL PAIN [None]
